FAERS Safety Report 9882580 (Version 1)
Quarter: 2014Q1

REPORT INFORMATION
  Report Type: Spontaneous
  Country: PT (occurrence: PT)
  Receive Date: 20140207
  Receipt Date: 20140207
  Transmission Date: 20141002
  Serious: Yes (Other)
  Sender: FDA-Public Use
  Company Number: PT-EISAI INC-E2090-03099-SPO-PT

PATIENT
  Sex: Female

DRUGS (2)
  1. ZONEGRAN [Suspect]
     Indication: EPILEPSY
     Route: 048
     Dates: start: 20140101, end: 20140122
  2. ZONEGRAN [Suspect]
     Route: 048
     Dates: start: 20140123

REACTIONS (1)
  - Breast engorgement [Unknown]
